FAERS Safety Report 7247592-5 (Version None)
Quarter: 2011Q1

REPORT INFORMATION
  Report Type: 
  Country: None (occurrence: None)
  Receive Date: 20110127
  Receipt Date: 20110121
  Transmission Date: 20110831
  Serious: Yes (Other)
  Sender: FDA-Public Use
  Company Number: TR-ROCHE-755372

PATIENT
  Sex: Male
  Weight: 60 kg

DRUGS (6)
  1. RABEPRAZOLE SODIUM [Concomitant]
     Dosage: FRE: 1X1; DRUG NAME PRABEX.
     Route: 048
  2. TERAZOSIN HCL [Concomitant]
     Dosage: FRQUENCY: 1X1; DRUG NAME: VASOCARD.
     Route: 048
  3. XELODA [Suspect]
     Route: 048
     Dates: start: 20110113
  4. CORASPIN [Concomitant]
     Dosage: FREQUENCY: 1X1.
  5. OXALIPLATIN [Suspect]
     Route: 042
     Dates: start: 20110113, end: 20110113
  6. CARDURA [Concomitant]
     Dosage: FREQUNCY: 1X1
     Route: 048

REACTIONS (5)
  - DYSPEPSIA [None]
  - NAUSEA [None]
  - EYE PAIN [None]
  - FORMICATION [None]
  - BONE PAIN [None]
